FAERS Safety Report 9697300 (Version 1)
Quarter: 2013Q4

REPORT INFORMATION
  Report Type: Spontaneous
  Country: US (occurrence: US)
  Receive Date: 20131120
  Receipt Date: 20131120
  Transmission Date: 20140711
  Serious: Yes (Life-Threatening, Other)
  Sender: FDA-Public Use
  Company Number: 2010SP000231

PATIENT
  Age: 60 Year
  Sex: Male

DRUGS (1)
  1. ADENOSINE [Suspect]
     Indication: TACHYCARDIA
     Route: 042

REACTIONS (3)
  - Cardiac arrest [Recovered/Resolved]
  - Dyspnoea [Unknown]
  - Flushing [Unknown]
